FAERS Safety Report 16289541 (Version 1)
Quarter: 2019Q2

REPORT INFORMATION
  Report Type: Spontaneous
  Country: US (occurrence: US)
  Receive Date: 20190508
  Receipt Date: 20190508
  Transmission Date: 20190711
  Serious: Yes (Hospitalization)
  Sender: FDA-Public Use
  Company Number: None

PATIENT
  Age: 73 Year
  Sex: Male

DRUGS (9)
  1. XALKORI [Suspect]
     Active Substance: CRIZOTINIB
     Indication: NON-SMALL CELL LUNG CANCER
     Route: 048
     Dates: start: 20190306
  2. FENTANYL 75MCG/HR PATCH [Concomitant]
     Dates: start: 20190404
  3. GABAPENTIN 300MG [Concomitant]
     Active Substance: GABAPENTIN
     Dates: start: 20190219
  4. MIDODRINE 5MG [Concomitant]
     Active Substance: MIDODRINE
     Dates: start: 20190122
  5. FUROSEMIDE 20MG [Concomitant]
     Active Substance: FUROSEMIDE
     Dates: start: 20190404
  6. FOLIC ACID 1MG [Concomitant]
     Active Substance: FOLIC ACID
     Dates: start: 20190219
  7. TAMSULOSIN 0.4MG [Concomitant]
     Active Substance: TAMSULOSIN
     Dates: start: 20190219
  8. XARELTO [Concomitant]
     Active Substance: RIVAROXABAN
     Dates: start: 20190404
  9. OMEPRAZOLE 20MG [Concomitant]
     Active Substance: OMEPRAZOLE
     Dates: start: 20190219

REACTIONS (2)
  - Haemoglobin decreased [None]
  - Peripheral swelling [None]

NARRATIVE: CASE EVENT DATE: 20190424
